FAERS Safety Report 6825908-9 (Version None)
Quarter: 2010Q3

REPORT INFORMATION
  Report Type: 
  Country: None (occurrence: None)
  Receive Date: 20100709
  Receipt Date: 20070427
  Transmission Date: 20110219
  Serious: Yes (Hospitalization)
  Sender: FDA-Public Use
  Company Number: GB-JNJFOC-20100701106

PATIENT
  Age: 87 Year
  Sex: Male

DRUGS (3)
  1. ACETAMINOPHEN AND CODEINE PHOSPHATE [Suspect]
     Indication: PAIN
     Route: 065
  2. ALFUZOSIN HCL [Concomitant]
  3. FUROSEMIDE [Concomitant]

REACTIONS (1)
  - FAECALOMA [None]
